FAERS Safety Report 15949435 (Version 1)
Quarter: 2019Q1

REPORT INFORMATION
  Report Type: Spontaneous
  Country: US (occurrence: US)
  Receive Date: 20190122
  Receipt Date: 20190122
  Transmission Date: 20190417
  Serious: No
  Sender: FDA-Public Use
  Company Number: None

PATIENT
  Age: 82 Year
  Sex: Female
  Weight: 63.5 kg

DRUGS (1)
  1. METHOTREXATE 50MG/2ML MDV [Suspect]
     Active Substance: METHOTREXATE SODIUM
     Indication: BONE DENSITY ABNORMAL
     Route: 058
     Dates: start: 201811

REACTIONS (1)
  - Alopecia [None]
